FAERS Safety Report 21925659 (Version 1)
Quarter: 2023Q1

REPORT INFORMATION
  Report Type: Spontaneous
  Country: US (occurrence: US)
  Receive Date: 20230130
  Receipt Date: 20230130
  Transmission Date: 20230418
  Serious: No
  Sender: FDA-Public Use
  Company Number: US-BAYER-2023A008141

PATIENT
  Age: 51 Year
  Sex: Female

DRUGS (1)
  1. CLIMARA PRO [Suspect]
     Active Substance: ESTRADIOL\LEVONORGESTREL
     Dates: start: 20230115, end: 20230115

REACTIONS (3)
  - Application site urticaria [None]
  - Application site hypersensitivity [None]
  - Urticaria [None]

NARRATIVE: CASE EVENT DATE: 20230115
